FAERS Safety Report 6197257-6 (Version None)
Quarter: 2009Q2

REPORT INFORMATION
  Report Type: 
  Country: None (occurrence: None)
  Receive Date: 20090521
  Receipt Date: 20090514
  Transmission Date: 20091009
  Serious: Yes (Life-Threatening, Hospitalization)
  Sender: FDA-Public Use
  Company Number: CA-CELGENEUS-028-C5013-09051061

PATIENT
  Weight: 92 kg

DRUGS (11)
  1. CC-5013 [Suspect]
     Indication: MULTIPLE MYELOMA
     Route: 048
     Dates: start: 20090509
  2. CC-5013 [Suspect]
     Route: 048
     Dates: start: 20090409
  3. DEXAMETHASONE 4MG TAB [Suspect]
     Indication: MULTIPLE MYELOMA
     Route: 048
     Dates: start: 20090509
  4. DEXAMETHASONE 4MG TAB [Suspect]
     Route: 048
     Dates: start: 20090409
  5. AMOXICILLIN [Suspect]
     Indication: INFECTION PROPHYLAXIS
     Route: 048
     Dates: start: 20090509
  6. RAMIPRIL [Concomitant]
     Indication: HYPERTENSION
     Route: 048
     Dates: start: 19990101
  7. LASIX [Concomitant]
     Indication: HYPERTENSION
     Route: 048
     Dates: start: 20030101
  8. CARDOVAL [Concomitant]
     Indication: HYPERTENSION
     Route: 048
     Dates: start: 20050101
  9. ALLOPURINOL [Concomitant]
     Indication: GOUT
     Route: 048
     Dates: start: 19990101
  10. DIGOXIN [Concomitant]
     Indication: ATRIAL FIBRILLATION
     Route: 048
     Dates: start: 20080901
  11. RABEPRAZOLE SODIUM [Concomitant]
     Indication: PROPHYLAXIS
     Route: 048
     Dates: start: 20081001

REACTIONS (1)
  - CARDIAC FAILURE CONGESTIVE [None]
